FAERS Safety Report 6172361-7 (Version None)
Quarter: 2009Q2

REPORT INFORMATION
  Report Type: 
  Country: None (occurrence: None)
  Receive Date: 20090429
  Receipt Date: 20090417
  Transmission Date: 20091009
  Serious: Yes (Other)
  Sender: FDA-Public Use
  Company Number: PHHY2009SE12393

PATIENT
  Sex: Female

DRUGS (2)
  1. TEGRETOL [Suspect]
     Dosage: 200 MG IN MORNING AND 200 MG IN EVENING
     Route: 048
     Dates: start: 20080908
  2. ALVEDON [Concomitant]

REACTIONS (1)
  - WEIGHT INCREASED [None]
